FAERS Safety Report 13692446 (Version 1)
Quarter: 2017Q2

REPORT INFORMATION
  Report Type: Spontaneous
  Country: US (occurrence: US)
  Receive Date: 20170627
  Receipt Date: 20170627
  Transmission Date: 20170830
  Serious: Yes (Other)
  Sender: FDA-Public Use
  Company Number: US-TEVA-680765USA

PATIENT
  Sex: Female
  Weight: 70.37 kg

DRUGS (1)
  1. LETROZOLE. [Suspect]
     Active Substance: LETROZOLE
     Indication: BREAST CANCER
     Dates: start: 20150814, end: 20160723

REACTIONS (13)
  - Myocardial infarction [Unknown]
  - Ligament pain [Not Recovered/Not Resolved]
  - Night sweats [Recovered/Resolved]
  - Pain in extremity [Unknown]
  - Myalgia [Unknown]
  - Tendon discomfort [Not Recovered/Not Resolved]
  - Musculoskeletal pain [Unknown]
  - Nausea [Unknown]
  - Musculoskeletal stiffness [Unknown]
  - Pain in jaw [Unknown]
  - Arthralgia [Unknown]
  - Bone pain [Unknown]
  - Weight increased [Unknown]

NARRATIVE: CASE EVENT DATE: 2015
